FAERS Safety Report 11948569 (Version 1)
Quarter: 2016Q1

REPORT INFORMATION
  Report Type: Spontaneous
  Country: US (occurrence: US)
  Receive Date: 20160125
  Receipt Date: 20160125
  Transmission Date: 20160526
  Serious: No
  Sender: FDA-Public Use
  Company Number: US-APOTEX-2015AP013418

PATIENT
  Age: 34 Year
  Sex: Male

DRUGS (4)
  1. TRAZODONE HYDROCHLORIDE. [Suspect]
     Active Substance: TRAZODONE HYDROCHLORIDE
     Indication: SLEEP DISORDER
     Dosage: 100 MG, SINGLE
     Route: 048
     Dates: start: 20150829, end: 20150829
  2. COGENTIN [Suspect]
     Active Substance: BENZTROPINE MESYLATE
     Indication: PROPHYLAXIS
     Dosage: 1 MG, QD
     Route: 048
  3. COGENTIN [Suspect]
     Active Substance: BENZTROPINE MESYLATE
     Indication: SLEEP DISORDER
  4. LATUDA [Concomitant]
     Active Substance: LURASIDONE HYDROCHLORIDE
     Indication: DEPRESSION
     Dosage: 1 DF, Q.AM
     Route: 048

REACTIONS (5)
  - Hypersomnia [Unknown]
  - Somnolence [Not Recovered/Not Resolved]
  - Feeling abnormal [Unknown]
  - Overdose [Recovered/Resolved]
  - Drug dispensing error [Unknown]

NARRATIVE: CASE EVENT DATE: 20150829
